FAERS Safety Report 7301240-4 (Version None)
Quarter: 2011Q1

REPORT INFORMATION
  Report Type: 
  Country: None (occurrence: None)
  Receive Date: 20110218
  Receipt Date: 20110216
  Transmission Date: 20110831
  Serious: Yes (Other)
  Sender: FDA-Public Use
  Company Number: AU-PFIZER INC-2011035831

PATIENT
  Age: 47 Year
  Sex: Female

DRUGS (1)
  1. CHAMPIX [Suspect]
     Indication: SMOKING CESSATION THERAPY
     Dosage: 1 MG, 2X/DAY
     Route: 048
     Dates: start: 20110101

REACTIONS (6)
  - DRY MOUTH [None]
  - MOUTH HAEMORRHAGE [None]
  - HEADACHE [None]
  - ABNORMAL DREAMS [None]
  - INSOMNIA [None]
  - DYSGEUSIA [None]
